FAERS Safety Report 25575312 (Version 1)
Quarter: 2025Q3

REPORT INFORMATION
  Report Type: Spontaneous
  Country: BR (occurrence: BR)
  Receive Date: 20250718
  Receipt Date: 20250718
  Transmission Date: 20251021
  Serious: Yes (Hospitalization, Other)
  Sender: ABBVIE
  Company Number: BR-ABBOTT-2025A-1400848

PATIENT
  Sex: Male
  Weight: 98 kg

DRUGS (1)
  1. DEPAKOTE [Suspect]
     Active Substance: DIVALPROEX SODIUM
     Indication: Epilepsy
     Dosage: 1 TABLET AT 9AM AND ANOTHER AT 9PM, 2 A DAY
     Route: 048

REACTIONS (8)
  - Fall [Unknown]
  - Injury [Unknown]
  - Seizure [Unknown]
  - Extra dose administered [Unknown]
  - Head injury [Unknown]
  - Renal injury [Recovered/Resolved]
  - Traumatic lung injury [Recovered/Resolved]
  - Haemorrhage [Unknown]

NARRATIVE: CASE EVENT DATE: 20250606
